FAERS Safety Report 5180384-X (Version None)
Quarter: 2006Q4

REPORT INFORMATION
  Report Type: 
  Country: None (occurrence: None)
  Receive Date: 20060919
  Receipt Date: 20060721
  Transmission Date: 20070319
  Serious: No
  Sender: FDA-Public Use
  Company Number: 2006US001572

PATIENT
  Age: 81 Year
  Sex: Male

DRUGS (7)
  1. VESICARE [Suspect]
     Indication: STRESS URINARY INCONTINENCE
     Dosage: 5 MG
  2. CENTRUM SILVER (ASCORBIC ACID, MINERAL NOS, VITAMINS NOS, VITAMIN B NO [Concomitant]
  3. ARTHROTEC [Concomitant]
  4. RANITIDINE (RANTIDINE HYDROCHLORIDE) [Concomitant]
  5. CRESTOR [Concomitant]
  6. ASPIRIN [Concomitant]
  7. ASCORBIC ACID [Concomitant]

REACTIONS (3)
  - LACRIMATION INCREASED [None]
  - VISION BLURRED [None]
  - VISUAL DISTURBANCE [None]
